FAERS Safety Report 6263181-3 (Version None)
Quarter: 2009Q3

REPORT INFORMATION
  Report Type: 
  Country: None (occurrence: None)
  Receive Date: 20090710
  Receipt Date: 20090708
  Transmission Date: 20100115
  Serious: Yes (Death, Life-Threatening, Hospitalization, Other)
  Sender: FDA-Public Use
  Company Number: FR-BRISTOL-MYERS SQUIBB COMPANY-13819065

PATIENT
  Age: 75 Year
  Sex: Female

DRUGS (8)
  1. HYDREA [Suspect]
     Indication: THROMBOCYTOPENIA
     Route: 048
     Dates: start: 19950615, end: 19991130
  2. TAXOL [Suspect]
     Indication: BREAST CANCER
     Route: 042
     Dates: start: 20050905, end: 20060109
  3. HERCEPTIN [Suspect]
     Indication: BREAST CANCER
     Dates: start: 20050905, end: 20060808
  4. CARBOPLATIN [Suspect]
     Indication: BREAST CANCER
     Dates: start: 20050905, end: 20060109
  5. ARIMIDEX [Suspect]
     Indication: BREAST CANCER
     Dates: start: 20060414, end: 20060901
  6. XAGRID [Suspect]
     Indication: ESSENTIAL THROMBOCYTHAEMIA
     Dates: start: 19990401, end: 20030601
  7. VERCYTE [Suspect]
     Indication: ESSENTIAL THROMBOCYTHAEMIA
     Dates: start: 19991201, end: 20050801
  8. RADIOTHERAPY [Suspect]
     Dates: start: 20060201, end: 20060401

REACTIONS (3)
  - ACUTE MYELOID LEUKAEMIA [None]
  - LUNG INFECTION [None]
  - MALIGNANT NEOPLASM PROGRESSION [None]
